FAERS Safety Report 4860419-1 (Version None)
Quarter: 2005Q4

REPORT INFORMATION
  Report Type: 
  Country: None (occurrence: None)
  Receive Date: 20051215
  Receipt Date: 20051202
  Transmission Date: 20060501
  Serious: Yes (Disabling, Other)
  Sender: FDA-Public Use
  Company Number: 2005148305

PATIENT
  Age: 49 Year
  Sex: Male
  Weight: 90.7194 kg

DRUGS (6)
  1. CELEBREX [Suspect]
     Indication: BACK PAIN
     Dosage: (200 MG, 1 IN 1 TOTAL)
     Dates: start: 20031231
  2. ALL OTHER THERAPEUTIC PRODUCTS (ALL OTHER THERAPEUTIC PRODUCTS) [Suspect]
     Indication: BACK PAIN
     Dosage: EPIDURAL
     Route: 008
     Dates: start: 20031002
  3. VICODIN [Concomitant]
  4. ANTIINFLAMMATORY/ANTIRHEMATIC NON-STEROIDS (ANTIINFLAMMATORY/ANTIRHEMA [Concomitant]
  5. ALL OTHER THERAPEUTIC PRODUCTS (ALL OTHER THERAPEUTIC PRODUCTS) [Concomitant]
  6. ROBAXIN [Concomitant]

REACTIONS (7)
  - ATRIAL FIBRILLATION [None]
  - CARDIAC FLUTTER [None]
  - CHEST PAIN [None]
  - ELECTROCARDIOGRAM ST-T CHANGE [None]
  - FATIGUE [None]
  - HEART RATE INCREASED [None]
  - RETCHING [None]
